FAERS Safety Report 5282651-8 (Version None)
Quarter: 2007Q1

REPORT INFORMATION
  Report Type: 
  Country: None (occurrence: None)
  Receive Date: 20061226
  Receipt Date: 20061025
  Transmission Date: 20070707
  Serious: No
  Sender: FDA-Public Use
  Company Number: PHEH2005US10823

PATIENT
  Age: 82 Year
  Sex: Female

DRUGS (1)
  1. ENABLEX [Suspect]
     Indication: HYPERTONIC BLADDER
     Dosage: 15 MG, QD
     Dates: start: 20040101

REACTIONS (5)
  - DENTAL CARIES [None]
  - DRUG INEFFECTIVE [None]
  - DRY MOUTH [None]
  - PRURITUS [None]
  - URINARY INCONTINENCE [None]
